FAERS Safety Report 9746308 (Version 1)
Quarter: 2013Q4

REPORT INFORMATION
  Report Type: Spontaneous
  Country: US (occurrence: None)
  Receive Date: 20131209
  Receipt Date: 20131209
  Transmission Date: 20140711
  Serious: Yes (Life-Threatening, Hospitalization, Disabling)
  Sender: FDA-Public Use
  Company Number: None

PATIENT
  Age: 39 Year
  Sex: Female
  Weight: 120.2 kg

DRUGS (1)
  1. RISPERIDONE [Suspect]
     Indication: SCHIZOPHRENIA
     Dosage: 3 PILLS ONCE DAILY TAKEN BY MOUTH
     Route: 048

REACTIONS (3)
  - Diabetes mellitus [None]
  - Cerebrovascular accident [None]
  - Blood pressure abnormal [None]
